FAERS Safety Report 6189084-0 (Version None)
Quarter: 2009Q2

REPORT INFORMATION
  Report Type: 
  Country: None (occurrence: None)
  Receive Date: 20090513
  Receipt Date: 20090511
  Transmission Date: 20091009
  Serious: Yes (Hospitalization)
  Sender: FDA-Public Use
  Company Number: AT-BRISTOL-MYERS SQUIBB COMPANY-14619563

PATIENT
  Sex: Female

DRUGS (8)
  1. ABILIFY [Suspect]
     Indication: SCHIZOAFFECTIVE DISORDER
     Dosage: 5 MG:15JAN-20JAN09 10MG:21JAN-25JAN09 20MG:26JAN-29JAN09 30MG:30JAN-03FEB09 15MG:04FEB-06FEB09
     Route: 048
     Dates: start: 20090115, end: 20090206
  2. HALDOL [Suspect]
     Dosage: 5 MG:19JAN09-22JAN09 7.5 MG:23JAN09-26JAN09 3 MG:27JAN09-06FEB09
     Route: 048
     Dates: start: 20090119, end: 20090206
  3. VENLAFAXINE HCL [Concomitant]
     Dosage: 225MG:09JAN09-11FEB09 150MG:12FEB09 - CONTINUED.
     Dates: start: 20090109
  4. BISOPROLOL FUMARATE [Concomitant]
     Dates: start: 20081230, end: 20090129
  5. DOMINAL [Concomitant]
     Dates: start: 20090120, end: 20090203
  6. ZYPREXA [Concomitant]
     Dates: start: 20090204
  7. RISPERDAL [Concomitant]
     Dates: start: 20090206
  8. MIRTABENE [Concomitant]
     Dosage: 30MG: 26DEC08-14JAN09 15MG: 15JAN09-CONTINUED
     Dates: start: 20081226

REACTIONS (1)
  - PSYCHOTIC DISORDER [None]
